FAERS Safety Report 24389023 (Version 1)
Quarter: 2024Q4

REPORT INFORMATION
  Report Type: Spontaneous
  Country: US (occurrence: US)
  Receive Date: 20241002
  Receipt Date: 20241002
  Transmission Date: 20250115
  Serious: No
  Sender: BOEHRINGER INGELHEIM
  Company Number: US-Komodo Health-a23aa000003VXfVAAW

PATIENT
  Age: 59 Year
  Sex: Female

DRUGS (1)
  1. JARDIANCE [Suspect]
     Active Substance: EMPAGLIFLOZIN
     Indication: Type 2 diabetes mellitus
     Dosage: DAILY DOSE: 10 MILLIGRAM(S)

REACTIONS (3)
  - Urinary tract infection [Recovered/Resolved]
  - Vaginal haemorrhage [Recovered/Resolved]
  - Fluid intake reduced [Unknown]
